FAERS Safety Report 16010459 (Version 2)
Quarter: 2019Q1

REPORT INFORMATION
  Report Type: Spontaneous
  Country: US (occurrence: US)
  Receive Date: 20190225
  Receipt Date: 20190302
  Transmission Date: 20190418
  Serious: Yes (Other)
  Sender: FDA-Public Use
  Company Number: US-TEVA-2019-US-1014575

PATIENT
  Age: 62 Year
  Sex: Female

DRUGS (2)
  1. WARFARIN SODIUM TABLETS TEVA [Suspect]
     Active Substance: WARFARIN SODIUM
     Dosage: 6 MILLIGRAM DAILY; 6 MG DAILY (5+1MG).
     Dates: start: 2005
  2. WARFARIN SODIUM TABLETS TEVA [Suspect]
     Active Substance: WARFARIN SODIUM
     Indication: AORTIC VALVE REPLACEMENT
     Dates: start: 201901

REACTIONS (2)
  - International normalised ratio fluctuation [Unknown]
  - Drug ineffective [Unknown]
